FAERS Safety Report 5608638-0 (Version None)
Quarter: 2008Q1

REPORT INFORMATION
  Report Type: 
  Country: None (occurrence: None)
  Receive Date: 20080130
  Receipt Date: 20080118
  Transmission Date: 20080703
  Serious: Yes (Other)
  Sender: FDA-Public Use
  Company Number: FR-PFIZER INC-2007094004

PATIENT
  Sex: Female
  Weight: 65 kg

DRUGS (2)
  1. RELPAX [Suspect]
     Indication: MIGRAINE
     Route: 048
  2. DROSPIRENONE + ETHINYL ESTRADIOL [Interacting]
     Indication: CONTRACEPTION
     Route: 048

REACTIONS (5)
  - CHEST DISCOMFORT [None]
  - DRUG INTERACTION [None]
  - DYSPNOEA [None]
  - LUNG DISORDER [None]
  - PAIN IN EXTREMITY [None]
